FAERS Safety Report 4868673-7 (Version None)
Quarter: 2005Q4

REPORT INFORMATION
  Report Type: 
  Country: None (occurrence: None)
  Receive Date: 20051223
  Receipt Date: 20051212
  Transmission Date: 20060501
  Serious: Yes (Disabling, Other)
  Sender: FDA-Public Use
  Company Number: 2005167442

PATIENT
  Sex: Male
  Weight: 124.7392 kg

DRUGS (6)
  1. VIAGRA [Suspect]
     Indication: ERECTILE DYSFUNCTION
     Dosage: 100 MG (100 MG,)
  2. CAVERJECT [Suspect]
     Indication: ERECTILE DYSFUNCTION
  3. TADALAFIL (TADALAFIL) [Suspect]
     Indication: ILL-DEFINED DISORDER
  4. YOHIMBINE (YOHIMBINE) [Concomitant]
  5. ANALGESICS (ANALGESICS) [Concomitant]
  6. ALL OTHER THERAPEUTIC PRODUCTS (ALL OTHER THERAPEUTIC PRODUCTS) [Concomitant]

REACTIONS (13)
  - ANXIETY [None]
  - ARTHRITIS [None]
  - BACK PAIN [None]
  - DEPRESSION [None]
  - DRUG EFFECT DECREASED [None]
  - FALL [None]
  - FLASHBACK [None]
  - INJURY [None]
  - INSOMNIA [None]
  - PAIN [None]
  - PARALYSIS [None]
  - RENAL DISORDER [None]
  - SPINAL DISORDER [None]
